FAERS Safety Report 21161549 (Version 1)
Quarter: 2022Q3

REPORT INFORMATION
  Report Type: Spontaneous
  Country: CN (occurrence: CN)
  Receive Date: 20220802
  Receipt Date: 20220802
  Transmission Date: 20221026
  Serious: Yes (Other)
  Sender: FDA-Public Use
  Company Number: CN-PFIZER INC-202201011636

PATIENT
  Age: 29 Year
  Sex: Male

DRUGS (2)
  1. XALKORI [Suspect]
     Active Substance: CRIZOTINIB
     Dosage: 250MG/CAPSULE ONCE A DAY
  2. XALKORI [Suspect]
     Active Substance: CRIZOTINIB
     Dosage: 250 MG/CAPSULE TWICE A DAY

REACTIONS (20)
  - Hypoproteinaemia [Unknown]
  - Hypocalcaemia [Unknown]
  - Renal failure [Unknown]
  - Hydronephrosis [Unknown]
  - Neoplasm progression [Unknown]
  - Nausea [Unknown]
  - Hypophagia [Unknown]
  - Cough [Unknown]
  - Productive cough [Unknown]
  - Oedema peripheral [Unknown]
  - Arthralgia [Unknown]
  - Dyschezia [Unknown]
  - Urethral pain [Unknown]
  - Abdominal discomfort [Unknown]
  - Pollakiuria [Unknown]
  - Micturition urgency [Unknown]
  - Scrotal oedema [Unknown]
  - Haemoglobin decreased [Unknown]
  - Ureteric dilatation [Unknown]
  - Prostatomegaly [Unknown]

NARRATIVE: CASE EVENT DATE: 20220101
